FAERS Safety Report 14260514 (Version 1)
Quarter: 2017Q4

REPORT INFORMATION
  Report Type: Report from Study
  Country: FR (occurrence: FR)
  Receive Date: 20171207
  Receipt Date: 20171207
  Transmission Date: 20180321
  Serious: Yes (Hospitalization)
  Sender: FDA-Public Use
  Company Number: FR-GILEAD-2017-0304634

PATIENT
  Age: 59 Year
  Sex: Male
  Weight: 63 kg

DRUGS (4)
  1. IDELALISIB [Suspect]
     Active Substance: IDELALISIB
     Dosage: 100 MG, BID
     Route: 048
     Dates: start: 20141103, end: 20141229
  2. IDELALISIB [Suspect]
     Active Substance: IDELALISIB
     Dosage: 150 MG, BID
     Route: 048
     Dates: end: 20150326
  3. DEPOCYT [Concomitant]
     Active Substance: CYTARABINE
     Indication: WALDENSTROM^S MACROGLOBULINAEMIA
  4. IDELALISIB [Suspect]
     Active Substance: IDELALISIB
     Indication: CHRONIC LYMPHOCYTIC LEUKAEMIA
     Dosage: 150 MG, BID
     Route: 048
     Dates: start: 20141022, end: 20141023

REACTIONS (4)
  - Lung disorder [Not Recovered/Not Resolved]
  - Urinary retention [Not Recovered/Not Resolved]
  - Febrile neutropenia [Recovered/Resolved]
  - Diarrhoea [Recovered/Resolved]

NARRATIVE: CASE EVENT DATE: 20141023
